FAERS Safety Report 20649962 (Version 1)
Quarter: 2022Q1

REPORT INFORMATION
  Report Type: Spontaneous
  Country: US (occurrence: US)
  Receive Date: 20220329
  Receipt Date: 20220329
  Transmission Date: 20220423
  Serious: Yes (Other)
  Sender: FDA-Public Use
  Company Number: US-BAYER-2022A044330

PATIENT
  Sex: Female

DRUGS (1)
  1. VITRAKVI [Suspect]
     Active Substance: LAROTRECTINIB
     Dosage: UNK
     Route: 048
     Dates: start: 20211207

REACTIONS (4)
  - Dizziness [None]
  - Feeling abnormal [None]
  - Fall [None]
  - Asthenia [None]
